FAERS Safety Report 12045598 (Version 2)
Quarter: 2016Q1

REPORT INFORMATION
  Report Type: Spontaneous
  Country: BR (occurrence: BR)
  Receive Date: 20160208
  Receipt Date: 20160211
  Transmission Date: 20160526
  Serious: Yes (Other)
  Sender: FDA-Public Use
  Company Number: BR-JNJFOC-20160204309

PATIENT
  Age: 35 Year
  Sex: Female
  Weight: 80 kg

DRUGS (1)
  1. STELARA [Suspect]
     Active Substance: USTEKINUMAB
     Indication: PSORIASIS
     Route: 058
     Dates: start: 20150202

REACTIONS (4)
  - Peripheral swelling [Unknown]
  - Pyrexia [Unknown]
  - Weight increased [Unknown]
  - Psoriasis [Unknown]

NARRATIVE: CASE EVENT DATE: 20160130
